FAERS Safety Report 17178771 (Version 1)
Quarter: 2019Q4

REPORT INFORMATION
  Report Type: Spontaneous
  Country: US (occurrence: US)
  Receive Date: 20191219
  Receipt Date: 20191219
  Transmission Date: 20200122
  Serious: Yes (Hospitalization)
  Sender: FDA-Public Use
  Company Number: US-LUPIN PHARMACEUTICALS INC.-2019-08497

PATIENT
  Age: 50 Year
  Sex: Male
  Weight: 115.65 kg

DRUGS (2)
  1. AMLODIPINE AND BENAZEPRIL HYDROCHLORIDE CAPSULES USP, 5 MG/20 MG [Suspect]
     Active Substance: AMLODIPINE BESYLATE\BENAZEPRIL HYDROCHLORIDE
     Indication: HYPERTENSION
     Dosage: UNK UNK, QD (5/20 MG)
     Route: 048
  2. LOSARTAN POTASSIUM AND HYDROCHLOROTHIAZIDE TABLET USP 50 MG/12.5 MG [Suspect]
     Active Substance: HYDROCHLOROTHIAZIDE\LOSARTAN POTASSIUM
     Indication: HYPERTENSION
     Dosage: UNK UNK, QD (50 MG/12.5 MG)
     Route: 048

REACTIONS (1)
  - Blood alcohol increased [Unknown]

NARRATIVE: CASE EVENT DATE: 20191125
